FAERS Safety Report 11417319 (Version 5)
Quarter: 2015Q4

REPORT INFORMATION
  Report Type: Spontaneous
  Country: US (occurrence: US)
  Receive Date: 20150825
  Receipt Date: 20151006
  Transmission Date: 20160304
  Serious: No
  Sender: FDA-Public Use
  Company Number: PHEH2015US016060

PATIENT
  Sex: Female

DRUGS (1)
  1. VIVELLE-DOT [Suspect]
     Active Substance: ESTRADIOL
     Indication: PRODUCT USED FOR UNKNOWN INDICATION
     Dosage: 0.05 MG, BIW
     Route: 062

REACTIONS (5)
  - Skin irritation [Unknown]
  - Contusion [Unknown]
  - Skin reaction [Unknown]
  - Dry skin [Unknown]
  - Skin discolouration [Unknown]
